FAERS Safety Report 7064111-7 (Version None)
Quarter: 2010Q4

REPORT INFORMATION
  Report Type: 
  Country: None (occurrence: None)
  Receive Date: 20101019
  Receipt Date: 20101006
  Transmission Date: 20110411
  Serious: Yes (Other)
  Sender: FDA-Public Use
  Company Number: FKO201000439

PATIENT
  Age: 66 Year
  Sex: Male

DRUGS (2)
  1. FLUOROURACIL [Suspect]
     Indication: COLON CANCER
  2. OXALIPLATIN [Suspect]
     Indication: COLON CANCER
     Dosage: (140 MG/M2, EVERY 21 DAYS)

REACTIONS (9)
  - ACIDOSIS HYPERCHLORAEMIC [None]
  - ANXIETY [None]
  - DEHYDRATION [None]
  - HEADACHE [None]
  - HYPOKALAEMIA [None]
  - LETHARGY [None]
  - MENTAL STATUS CHANGES [None]
  - PYREXIA [None]
  - RENAL TUBULAR ACIDOSIS [None]
